FAERS Safety Report 8929165 (Version 1)
Quarter: 2012Q4

REPORT INFORMATION
  Report Type: Spontaneous
  Country: US (occurrence: None)
  Receive Date: 20121126
  Receipt Date: 20121126
  Transmission Date: 20130627
  Serious: Yes (Other)
  Sender: FDA-Public Use
  Company Number: None

PATIENT
  Age: 31 Year
  Sex: Female
  Weight: 7.26 kg

DRUGS (2)
  1. MUPIROCIN [Suspect]
     Indication: INFECTION MRSA
     Dosage: apply in nostrils 3x/day
     Route: 055
     Dates: start: 20110604, end: 20120611
  2. DOXYCYCLINE [Suspect]
     Indication: INFECTION MRSA
     Dosage: 100 2x/day

REACTIONS (2)
  - Abortion spontaneous [None]
  - Maternal drugs affecting foetus [None]
